FAERS Safety Report 9932413 (Version 1)
Quarter: 2014Q1

REPORT INFORMATION
  Report Type: Spontaneous
  Country: US (occurrence: US)
  Receive Date: 20140228
  Receipt Date: 20140228
  Transmission Date: 20141002
  Serious: No
  Sender: FDA-Public Use
  Company Number: US-GLAXOSMITHKLINE-A1012849A

PATIENT
  Age: 49 Year
  Sex: Male

DRUGS (3)
  1. LAMICTAL [Suspect]
     Indication: CEREBROVASCULAR ACCIDENT
     Dosage: 250MG TWICE PER DAY
     Route: 048
     Dates: start: 2008, end: 2009
  2. LAMICTAL [Suspect]
     Indication: CEREBROVASCULAR ACCIDENT
     Dosage: 250MG TWICE PER DAY
     Route: 048
     Dates: start: 2009
  3. ALPRAZOLAM [Concomitant]

REACTIONS (2)
  - Therapeutic response decreased [Recovering/Resolving]
  - Therapeutic response unexpected [Unknown]
